FAERS Safety Report 5285162-9 (Version None)
Quarter: 2007Q2

REPORT INFORMATION
  Report Type: 
  Country: None (occurrence: None)
  Receive Date: 20070403
  Receipt Date: 20070322
  Transmission Date: 20071010
  Serious: Yes (Other)
  Sender: FDA-Public Use
  Company Number: GB-PFIZER INC-2007008207

PATIENT
  Sex: Female
  Weight: 69.2 kg

DRUGS (2)
  1. CABERGOLINE [Suspect]
     Indication: PROLACTINOMA
     Dates: start: 20060201, end: 20061210
  2. CABERGOLINE [Suspect]
     Indication: PITUITARY TUMOUR BENIGN

REACTIONS (1)
  - ABORTION SPONTANEOUS [None]
